FAERS Safety Report 12129955 (Version 1)
Quarter: 2016Q1

REPORT INFORMATION
  Report Type: Spontaneous
  Country: US (occurrence: None)
  Receive Date: 20160229
  Receipt Date: 20160229
  Transmission Date: 20160526
  Serious: No
  Sender: FDA-Public Use
  Company Number: None

PATIENT
  Age: 46 Year
  Sex: Female
  Weight: 54.43 kg

DRUGS (2)
  1. AMPHETAMINE SALTS 20 MG COREPHARMA, LLC [Suspect]
     Active Substance: AMPHETAMINE ASPARTATE\AMPHETAMINE SULFATE\DEXTROAMPHETAMINE SACCHARATE\DEXTROAMPHETAMINE SULFATE
     Indication: ATTENTION DEFICIT/HYPERACTIVITY DISORDER
     Dosage: 1 PILL TWICE DAILY TAKEN BY MOUTH
     Route: 048
  2. ADVIL [Concomitant]
     Active Substance: IBUPROFEN

REACTIONS (9)
  - Drug ineffective [None]
  - Fatigue [None]
  - Condition aggravated [None]
  - Product substitution issue [None]
  - Headache [None]
  - Tremor [None]
  - Feeling abnormal [None]
  - Irritability [None]
  - Muscle spasms [None]

NARRATIVE: CASE EVENT DATE: 20160210
